FAERS Safety Report 10420907 (Version 1)
Quarter: 2014Q3

REPORT INFORMATION
  Report Type: Spontaneous
  Country: US (occurrence: None)
  Receive Date: 20140714
  Receipt Date: 20140714
  Transmission Date: 20150326
  Serious: No
  Sender: FDA-Public Use
  Company Number: 2014US003258

PATIENT
  Age: 54 Year
  Sex: Male

DRUGS (6)
  1. PROMETHAZINE [Concomitant]
     Active Substance: PROMETHAZINE\PROMETHAZINE HYDROCHLORIDE
  2. MORPHINE SULFATE. [Concomitant]
     Active Substance: MORPHINE SULFATE
  3. DURAGESIC (FENTANYL) [Concomitant]
  4. LISINOPRIL (LISINOPRIL DIHYDRATE) [Concomitant]
  5. ICLUSIG [Suspect]
     Active Substance: PONATINIB
     Indication: CHOLANGIOCARCINOMA
     Route: 048
  6. AMLODIPINE [Concomitant]
     Active Substance: AMLODIPINE BESYLATE

REACTIONS (1)
  - Off label use [None]
